FAERS Safety Report 11469923 (Version 1)
Quarter: 2015Q3

REPORT INFORMATION
  Report Type: Spontaneous
  Country: CN (occurrence: CN)
  Receive Date: 20150908
  Receipt Date: 20150908
  Transmission Date: 20151125
  Serious: Yes (Other)
  Sender: FDA-Public Use
  Company Number: CN-BAYER-2015-411524

PATIENT
  Sex: Male

DRUGS (1)
  1. AVELOX [Suspect]
     Active Substance: MOXIFLOXACIN HYDROCHLORIDE
     Indication: PROSTATIC DISORDER
     Dosage: UNK
     Route: 048
     Dates: start: 201508

REACTIONS (6)
  - Discomfort [None]
  - Product use issue [None]
  - Swelling face [None]
  - Dizziness [None]
  - Haemorrhage [None]
  - Headache [None]

NARRATIVE: CASE EVENT DATE: 201508
